FAERS Safety Report 9580239 (Version 1)
Quarter: 2013Q3

REPORT INFORMATION
  Report Type: Spontaneous
  Country: US (occurrence: None)
  Receive Date: 20130916
  Receipt Date: 20130916
  Transmission Date: 20140515
  Serious: Yes (Other)
  Sender: FDA-Public Use
  Company Number: JPI-P-024952

PATIENT
  Age: 56 Year
  Sex: Female
  Weight: 58.97 kg

DRUGS (11)
  1. XYREM ?(500 MILLIGRAM/MILLILITERS, SOLUTION)(SODIUM OXYBATE) [Suspect]
     Indication: NARCOLEPSY
     Route: 048
     Dates: start: 20120514, end: 2012
  2. XYREM ?(500 MILLIGRAM/MILLILITERS, SOLUTION)(SODIUM OXYBATE) [Suspect]
     Indication: SOMNOLENCE
     Route: 048
     Dates: start: 20120514, end: 2012
  3. TIZANIDINE [Concomitant]
  4. FLUOXETINE [Concomitant]
  5. LEVOTHYROXINE [Concomitant]
  6. ARMODAFINIL [Concomitant]
  7. CLONAZEPAM [Concomitant]
  8. VITAMINS [Concomitant]
  9. CALCIUM SUPPLEMENT [Concomitant]
  10. CETIRIZINE, PSEUDOEPHEDRINE [Concomitant]
  11. GUAIFENESIN AND PSEUDOEPHEDRINE [Concomitant]

REACTIONS (19)
  - Weight decreased [None]
  - Wheezing [None]
  - Anxiety [None]
  - Condition aggravated [None]
  - Sinusitis [None]
  - Cough [None]
  - Haemoglobin decreased [None]
  - Ear pain [None]
  - Bronchitis viral [None]
  - Decreased appetite [None]
  - Paraesthesia [None]
  - Hypoaesthesia [None]
  - Feeling jittery [None]
  - Nervousness [None]
  - Feeling abnormal [None]
  - Hypersomnia [None]
  - Depression [None]
  - Depressed mood [None]
  - Lethargy [None]
